FAERS Safety Report 6756679-2 (Version None)
Quarter: 2010Q2

REPORT INFORMATION
  Report Type: 
  Country: None (occurrence: None)
  Receive Date: 20100604
  Receipt Date: 20100524
  Transmission Date: 20101027
  Serious: Yes (Other)
  Sender: FDA-Public Use
  Company Number: JP-WATSON-2010-07102

PATIENT
  Age: 35 Year
  Sex: Female

DRUGS (1)
  1. ACYCLOVIR [Suspect]
     Indication: ENCEPHALITIS HERPES
     Dosage: 30 MG/KG, DAILY
     Route: 042

REACTIONS (3)
  - AMNESIA [None]
  - CEREBRAL HAEMORRHAGE [None]
  - HEMIANOPIA [None]
